FAERS Safety Report 20907499 (Version 2)
Quarter: 2022Q3

REPORT INFORMATION
  Report Type: Report from Study
  Country: FR (occurrence: FR)
  Receive Date: 20220602
  Receipt Date: 20220706
  Transmission Date: 20221027
  Serious: Yes (Hospitalization)
  Sender: FDA-Public Use
  Company Number: None

PATIENT
  Age: 0 Year
  Sex: Female

DRUGS (15)
  1. ELEXACAFTOR\IVACAFTOR\TEZACAFTOR [Suspect]
     Active Substance: ELEXACAFTOR\IVACAFTOR\TEZACAFTOR
     Indication: Cystic fibrosis
     Dosage: UNK FREQ
     Route: 048
     Dates: start: 2020, end: 20210202
  2. KALYDECO [Suspect]
     Active Substance: IVACAFTOR
     Indication: Cystic fibrosis
     Dosage: UNK FREQ
     Route: 048
     Dates: start: 2020, end: 20210202
  3. CEFTAZIDIME [Suspect]
     Active Substance: CEFTAZIDIME
     Indication: Infection
     Dosage: 5 G/12 H
     Route: 064
     Dates: start: 20200119, end: 20210127
  4. OMEPRAZOLE [Suspect]
     Active Substance: OMEPRAZOLE
     Indication: Prophylaxis
     Dosage: 40 MG/12 H
     Route: 064
     Dates: end: 20210202
  5. AZACTAM [Suspect]
     Active Substance: AZTREONAM
     Indication: Prophylaxis
     Dosage: 6 GRAM
     Route: 064
     Dates: start: 20210127, end: 20210202
  6. AZACTAM [Suspect]
     Active Substance: AZTREONAM
     Dosage: 1 GRAM
     Route: 064
  7. CREON [Suspect]
     Active Substance: PANCRELIPASE AMYLASE\PANCRELIPASE LIPASE\PANCRELIPASE PROTEASE
     Indication: Pancreatic failure
     Dosage: 11-16 CAPS DAILY
     Route: 064
     Dates: end: 20210202
  8. BRICANYL [Suspect]
     Active Substance: TERBUTALINE SULFATE
     Indication: Product used for unknown indication
     Dosage: 2 INHALATIONS IF NEEDED
     Route: 064
  9. CEFTAZIDIME [Suspect]
     Active Substance: CEFTAZIDIME
     Indication: Product used for unknown indication
     Dosage: UNK
     Route: 064
     Dates: start: 20200922, end: 20201007
  10. .ALPHA.-TOCOPHEROL ACETATE, D- [Suspect]
     Active Substance: .ALPHA.-TOCOPHEROL ACETATE, D-
     Indication: Product used for unknown indication
     Dosage: UNK
     Route: 064
  11. CALCIUM PHOSPHATE, DIBASIC, ANHYDROUS\MAGNESIUM GLYCEROPHOSPHATE\PHOSP [Suspect]
     Active Substance: CALCIUM PHOSPHATE, DIBASIC, ANHYDROUS\MAGNESIUM GLYCEROPHOSPHATE\PHOSPHORIC ACID\SODIUM PHOSPHATE, D
     Indication: Product used for unknown indication
     Dosage: 200 DROPS
     Route: 064
  12. PHOSPHATES [Concomitant]
     Route: 048
  13. AZTREONAM [Concomitant]
     Active Substance: AZTREONAM
     Dosage: 6G/D
  14. PANCREATIN [Concomitant]
     Active Substance: PANCRELIPASE
     Dosage: 160, 000 UI/D
  15. INSULIN NOS [Concomitant]
     Active Substance: INSULIN NOS
     Dosage: 200 DROPS (1/12 MILLILITRE)

REACTIONS (2)
  - Neonatal respiratory distress syndrome [Unknown]
  - Pulmonary haemorrhage [Recovered/Resolved]

NARRATIVE: CASE EVENT DATE: 20210202
